FAERS Safety Report 22984313 (Version 2)
Quarter: 2023Q4

REPORT INFORMATION
  Report Type: Report from Study
  Country: US (occurrence: US)
  Receive Date: 20230926
  Receipt Date: 20231130
  Transmission Date: 20240110
  Serious: Yes (Hospitalization, Other)
  Sender: FDA-Public Use
  Company Number: US-TAKEDA-2023TUS092405

PATIENT
  Sex: Female

DRUGS (1)
  1. MARIBAVIR [Suspect]
     Active Substance: MARIBAVIR
     Indication: Cytomegalovirus infection
     Dosage: UNK
     Route: 048
     Dates: start: 20230701

REACTIONS (7)
  - Loss of consciousness [Unknown]
  - Fall [Unknown]
  - Infection [Unknown]
  - Blood pressure decreased [Unknown]
  - Arthralgia [Unknown]
  - Wheelchair user [Unknown]
  - Product dose omission issue [Unknown]
